FAERS Safety Report 19089501 (Version 1)
Quarter: 2021Q2

REPORT INFORMATION
  Report Type: Spontaneous
  Country: US (occurrence: US)
  Receive Date: 20210403
  Receipt Date: 20210403
  Transmission Date: 20210717
  Serious: Yes (Hospitalization, Other)
  Sender: FDA-Public Use
  Company Number: US-CIPLA LTD.-2021US02559

PATIENT

DRUGS (9)
  1. CARBOPLATIN. [Suspect]
     Active Substance: CARBOPLATIN
     Indication: CONGENITAL RETINOBLASTOMA
     Dosage: 67.2 MG, UNK, DAY?1 AND 2 OF CYCLE?1
     Route: 042
  2. ETOPOSIDE. [Suspect]
     Active Substance: ETOPOSIDE
     Dosage: 44.4 MG, UNK, ON DAY?1 AND 2 OF CYCLE 6
     Route: 042
  3. CARBOPLATIN. [Suspect]
     Active Substance: CARBOPLATIN
     Dosage: 103.6 MG, UNK, DAY?1 AND 2 OF CYCLE?6
     Route: 042
  4. CARBOPLATIN. [Suspect]
     Active Substance: CARBOPLATIN
     Dosage: 99.4 MG, UNK, DAY?1 AND 2 CYCLE 4?5
     Route: 042
  5. ETOPOSIDE. [Suspect]
     Active Substance: ETOPOSIDE
     Dosage: 42.6 MG, UNK, DAY?1 AND 2 OF CYCLE 4?5
     Route: 042
  6. CARBOPLATIN. [Suspect]
     Active Substance: CARBOPLATIN
     Dosage: 93.8 MG, UNK, DAY?1 AND 2 CYCLE 2?3
     Route: 042
  7. ETOPOSIDE. [Suspect]
     Active Substance: ETOPOSIDE
     Dosage: 40.2 MG, UNK, DAY?1 AND 2 OF CYCLE 2?3
     Route: 042
  8. ETOPOSIDE. [Suspect]
     Active Substance: ETOPOSIDE
     Indication: CONGENITAL RETINOBLASTOMA
     Dosage: 28.8 MG, UNK, ON DAY?1 AND 2 OF CYCLE?1
     Route: 042
  9. VINCRISTINE [Suspect]
     Active Substance: VINCRISTINE
     Indication: CONGENITAL RETINOBLASTOMA
     Dosage: 0.2 MG, UNK, ON DAY?1 OF CYCLES 1?6
     Route: 042

REACTIONS (6)
  - Cytopenia [Unknown]
  - Thrombocytopenia [Unknown]
  - Toxicity to various agents [Unknown]
  - Neutropenia [Unknown]
  - Rash [Unknown]
  - Catheter site infection [Unknown]
